FAERS Safety Report 6178331-7 (Version None)
Quarter: 2009Q2

REPORT INFORMATION
  Report Type: 
  Country: None (occurrence: None)
  Receive Date: 20090504
  Receipt Date: 20080314
  Transmission Date: 20091009
  Serious: Yes (Other)
  Sender: FDA-Public Use
  Company Number: GB-SANOFI-SYNTHELABO-D01200701149

PATIENT
  Sex: Male
  Weight: 79 kg

DRUGS (4)
  1. LEUCOVORIN CALCIUM [Suspect]
     Route: 042
     Dates: start: 20070207, end: 20070207
  2. FLUOROURACIL [Suspect]
     Dosage: 400 MG/M?, IV BOLUS D1+D2 FOLLOWED BY 5-FU 2400 MG/M? OVER 46-HOUR CONTINUOUS INFUSION.
     Route: 042
     Dates: start: 20070206, end: 20070207
  3. OXALIPLATIN [Suspect]
     Route: 042
     Dates: start: 20070207, end: 20070207
  4. SR57746 [Suspect]
     Indication: NEUROLOGICAL SYMPTOM
     Route: 048
     Dates: start: 20060823, end: 20070215

REACTIONS (1)
  - PULMONARY EMBOLISM [None]
